FAERS Safety Report 18442205 (Version 2)
Quarter: 2020Q4

REPORT INFORMATION
  Report Type: Spontaneous
  Country: KH (occurrence: KH)
  Receive Date: 20201029
  Receipt Date: 20201114
  Transmission Date: 20210114
  Serious: Yes (Other)
  Sender: FDA-Public Use
  Company Number: NVSC2020KH286318

PATIENT
  Age: 47 Year
  Sex: Female

DRUGS (2)
  1. TASIGNA [Suspect]
     Active Substance: NILOTINIB
     Indication: CHRONIC MYELOID LEUKAEMIA
     Dosage: 400 MG, QD
     Route: 048
     Dates: start: 20200730, end: 20200806
  2. MAGNESIUM + B6 [Concomitant]
     Indication: HYPOMAGNESAEMIA
     Dosage: 2 DF, BID
     Route: 048
     Dates: start: 20200730, end: 20201022

REACTIONS (3)
  - Dyspnoea [Unknown]
  - Electrocardiogram QT prolonged [Not Recovered/Not Resolved]
  - Palpitations [Unknown]

NARRATIVE: CASE EVENT DATE: 20200730
